FAERS Safety Report 4285908-2 (Version None)
Quarter: 2004Q1

REPORT INFORMATION
  Report Type: 
  Country: None (occurrence: None)
  Receive Date: 20040205
  Receipt Date: 20040205
  Transmission Date: 20041129
  Serious: Yes (Other)
  Sender: FDA-Public Use
  Company Number: US-GLAXOSMITHKLINE-A0494339A

PATIENT
  Age: 61 Year
  Sex: Female

DRUGS (3)
  1. ALOSETRON HYDROCHLORIDE [Suspect]
     Indication: DIARRHOEA
     Route: 048
     Dates: start: 20031112, end: 20040114
  2. ALOSETRON HYDROCHLORIDE [Suspect]
     Indication: IRRITABLE BOWEL SYNDROME
     Route: 048
     Dates: start: 20031112, end: 20040114
  3. IMODIUM A-D [Concomitant]
     Indication: IRRITABLE BOWEL SYNDROME
     Dates: end: 20031022

REACTIONS (5)
  - ABDOMINAL PAIN [None]
  - COLITIS [None]
  - DIARRHOEA HAEMORRHAGIC [None]
  - GASTROINTESTINAL EROSION [None]
  - RECTAL HAEMORRHAGE [None]
